FAERS Safety Report 20689296 (Version 1)
Quarter: 2022Q2

REPORT INFORMATION
  Report Type: Spontaneous
  Country: US (occurrence: None)
  Receive Date: 20220407
  Receipt Date: 20220407
  Transmission Date: 20220720
  Serious: Yes (Hospitalization)
  Sender: FDA-Public Use
  Company Number: None

PATIENT
  Age: 19 Year
  Sex: Male

DRUGS (1)
  1. OMNIPAQUE [Suspect]
     Active Substance: IOHEXOL
     Dosage: OTHER FREQUENCY : ONCE;?
     Route: 042
     Dates: start: 20220323, end: 20220323

REACTIONS (2)
  - Hypersensitivity [None]
  - Contrast media allergy [None]

NARRATIVE: CASE EVENT DATE: 20220323
